FAERS Safety Report 8047436-8 (Version None)
Quarter: 2012Q1

REPORT INFORMATION
  Report Type: 
  Country: None (occurrence: None)
  Receive Date: 20120116
  Receipt Date: 20120105
  Transmission Date: 20120608
  Serious: Yes (Death)
  Sender: FDA-Public Use
  Company Number: PL-BAXTER-2011BH038720

PATIENT
  Age: 30 Year
  Sex: Female

DRUGS (1)
  1. DIANEAL [Suspect]
     Indication: PERITONEAL DIALYSIS
     Route: 033
     Dates: end: 20111204

REACTIONS (2)
  - ENCEPHALITIS BRAIN STEM [None]
  - PSEUDOMONAS INFECTION [None]
